FAERS Safety Report 16786458 (Version 2)
Quarter: 2019Q3

REPORT INFORMATION
  Report Type: Spontaneous
  Country: JP (occurrence: JP)
  Receive Date: 20190909
  Receipt Date: 20190916
  Transmission Date: 20191005
  Serious: Yes (Other)
  Sender: FDA-Public Use
  Company Number: JP-INCYTE CORPORATION-2019IN009021

PATIENT

DRUGS (2)
  1. JAKAVI [Suspect]
     Active Substance: RUXOLITINIB
     Indication: MYELOFIBROSIS
     Dosage: UNK
     Route: 065
  2. PREDNISOLONE. [Concomitant]
     Active Substance: PREDNISOLONE
     Indication: ORGANISING PNEUMONIA
     Dosage: 1 MG, UNK
     Route: 065

REACTIONS (22)
  - Atelectasis [Unknown]
  - Arthropathy [Unknown]
  - Biopsy pleura abnormal [Unknown]
  - Pyrexia [Recovered/Resolved]
  - Joint swelling [Recovering/Resolving]
  - Synovial disorder [Recovering/Resolving]
  - Movement disorder [Unknown]
  - Anaemia [Unknown]
  - Breath sounds abnormal [Unknown]
  - Tuberculous pleurisy [Recovered/Resolved]
  - Neutrophil count increased [Unknown]
  - Joint effusion [Unknown]
  - Pleural effusion [Recovered/Resolved]
  - Lymphocyte count increased [Unknown]
  - Platelet count increased [Unknown]
  - Dyspnoea [Unknown]
  - Arthralgia [Recovering/Resolving]
  - Joint tuberculosis [Recovered/Resolved]
  - Cachexia [Unknown]
  - Blood lactate dehydrogenase increased [Unknown]
  - Pleural thickening [Unknown]
  - Weight decreased [Unknown]
